FAERS Safety Report 7020932-8 (Version None)
Quarter: 2010Q3

REPORT INFORMATION
  Report Type: 
  Country: None (occurrence: None)
  Receive Date: 20100929
  Receipt Date: 20100928
  Transmission Date: 20110219
  Serious: Yes (Hospitalization)
  Sender: FDA-Public Use
  Company Number: US-BRISTOL-MYERS SQUIBB COMPANY-15307788

PATIENT
  Age: 5 Decade
  Sex: Female

DRUGS (5)
  1. ABILIFY [Suspect]
  2. CLOZAPINE [Suspect]
  3. DIFLUCAN [Concomitant]
  4. TRAZODONE HCL [Concomitant]
  5. KLONOPIN [Concomitant]

REACTIONS (1)
  - PULMONARY THROMBOSIS [None]
